FAERS Safety Report 4565724-4 (Version None)
Quarter: 2005Q1

REPORT INFORMATION
  Report Type: 
  Country: None (occurrence: None)
  Receive Date: 20050126
  Receipt Date: 20041222
  Transmission Date: 20050727
  Serious: Yes (Other)
  Sender: FDA-Public Use
  Company Number: US_0501110429

PATIENT
  Age: 69 Year
  Sex: Male

DRUGS (2)
  1. HUMULIN N [Suspect]
     Dates: start: 19890101
  2. LANTUS [Concomitant]

REACTIONS (2)
  - BLOOD DISORDER [None]
  - NEOPLASM MALIGNANT [None]
